FAERS Safety Report 10201885 (Version 2)
Quarter: 2014Q2

REPORT INFORMATION
  Report Type: Spontaneous
  Country: CA (occurrence: CA)
  Receive Date: 20140528
  Receipt Date: 20140604
  Transmission Date: 20141212
  Serious: Yes (Death, Hospitalization, Other)
  Sender: FDA-Public Use
  Company Number: PHHY2014CA064629

PATIENT
  Sex: Female

DRUGS (3)
  1. LOPRESSOR [Suspect]
     Dosage: UNK UKN, UNK
  2. DILAUDID [Interacting]
     Dosage: UNK UKN, UNK
  3. METOPROLOL [Concomitant]
     Dosage: UNK UKN, UNK
     Dates: start: 2004

REACTIONS (15)
  - Drug interaction [Fatal]
  - Overdose [Fatal]
  - Medication error [Fatal]
  - Restlessness [Unknown]
  - Sleep disorder [Unknown]
  - Peripheral coldness [Unknown]
  - Pallor [Unknown]
  - Dehydration [Unknown]
  - Cyanosis [Unknown]
  - Agitation [Unknown]
  - Myocardial infarction [Unknown]
  - Bronchospasm [Unknown]
  - Hypotension [Unknown]
  - Respiratory disorder [Unknown]
  - Dyspnoea [Unknown]
